FAERS Safety Report 17360681 (Version 1)
Quarter: 2020Q1

REPORT INFORMATION
  Report Type: Spontaneous
  Country: US (occurrence: US)
  Receive Date: 20200203
  Receipt Date: 20200203
  Transmission Date: 20200409
  Serious: No
  Sender: FDA-Public Use
  Company Number: US-BAYER-2020-018542

PATIENT
  Age: 69 Year
  Sex: Female

DRUGS (2)
  1. CLEARLAX [Concomitant]
     Active Substance: POLYETHYLENE GLYCOL 3350
  2. MIRALAX [Suspect]
     Active Substance: POLYETHYLENE GLYCOL 3350
     Indication: FAECES HARD
     Dosage: 0.5 DF
     Route: 048
     Dates: start: 201911

REACTIONS (2)
  - Drug ineffective [Unknown]
  - Incorrect dose administered [Unknown]

NARRATIVE: CASE EVENT DATE: 201911
